FAERS Safety Report 5876492-8 (Version None)
Quarter: 2008Q3

REPORT INFORMATION
  Report Type: 
  Country: None (occurrence: None)
  Receive Date: 20080910
  Receipt Date: 20080904
  Transmission Date: 20090109
  Serious: Yes (Hospitalization)
  Sender: FDA-Public Use
  Company Number: A0746677A

PATIENT
  Age: 67 Year
  Sex: Male
  Weight: 85.9 kg

DRUGS (7)
  1. AVANDIA [Suspect]
     Dosage: 4MG TWICE PER DAY
     Route: 048
     Dates: start: 20050101, end: 20070112
  2. GLUCOPHAGE [Concomitant]
     Dates: start: 20050101
  3. AMARYL [Concomitant]
     Dates: start: 20050101, end: 20080101
  4. GLUCOTROL [Concomitant]
     Dates: start: 20050101, end: 20060101
  5. METFORMIN [Concomitant]
     Dates: start: 20050101
  6. COREG [Concomitant]
     Dates: start: 20061101
  7. LIPITOR [Concomitant]

REACTIONS (6)
  - ANXIETY [None]
  - CEREBROVASCULAR ACCIDENT [None]
  - CHEST PAIN [None]
  - MACULAR OEDEMA [None]
  - MYOCARDIAL INFARCTION [None]
  - PAIN [None]
